FAERS Safety Report 6269883-7 (Version None)
Quarter: 2009Q3

REPORT INFORMATION
  Report Type: 
  Country: None (occurrence: None)
  Receive Date: 20090716
  Receipt Date: 20090707
  Transmission Date: 20100115
  Serious: Yes (Hospitalization, Other)
  Sender: FDA-Public Use
  Company Number: PHHY2009FR28189

PATIENT
  Sex: Male

DRUGS (9)
  1. TRILEPTAL [Suspect]
     Indication: EPILEPSY
     Dosage: 150 MG, QD
     Route: 048
     Dates: start: 20090528, end: 20090531
  2. AUGMENTIN '125' [Suspect]
     Dosage: 1 G, TID
     Route: 048
     Dates: start: 20090526, end: 20090608
  3. LIORESAL [Concomitant]
     Dosage: 30 MG, TID
     Route: 048
     Dates: start: 20081201
  4. DI-HYDAN [Concomitant]
     Indication: EPILEPSY
     Dosage: 300 MG, QD
     Route: 048
     Dates: start: 20090526
  5. JOSIR [Concomitant]
     Indication: PROSTATIC ADENOMA
     Dosage: 0.4 MG, QD
     Dates: start: 20090101
  6. VITAMIN B1 AND B6 [Concomitant]
     Dosage: 2 DF, BID
     Route: 048
     Dates: start: 20090524
  7. FORLAX [Concomitant]
     Indication: CONSTIPATION
     Dosage: 20 G, PRN
     Route: 048
  8. EFFERALGAN [Concomitant]
     Dosage: 1 G, PRN
     Route: 048
  9. NORMACOL [Concomitant]
     Indication: CONSTIPATION
     Dosage: 1 DF, PRN
     Dates: start: 20090101, end: 20090501

REACTIONS (12)
  - ALANINE AMINOTRANSFERASE INCREASED [None]
  - ASPARTATE AMINOTRANSFERASE INCREASED [None]
  - BLOOD ALKALINE PHOSPHATASE INCREASED [None]
  - C-REACTIVE PROTEIN INCREASED [None]
  - CHOLESTASIS [None]
  - COUGH [None]
  - GENERALISED ERYTHEMA [None]
  - HEPATIC FUNCTION ABNORMAL [None]
  - MIXED LIVER INJURY [None]
  - PYREXIA [None]
  - TACHYCARDIA [None]
  - TOXIC SKIN ERUPTION [None]
